FAERS Safety Report 5895170-2 (Version None)
Quarter: 2008Q3

REPORT INFORMATION
  Report Type: 
  Country: None (occurrence: None)
  Receive Date: 20080923
  Receipt Date: 20080923
  Transmission Date: 20090109
  Serious: Yes (Hospitalization, Other)
  Sender: FDA-Public Use
  Company Number: None

PATIENT
  Age: 42 Year
  Sex: Female
  Weight: 104.3273 kg

DRUGS (1)
  1. PREDNISONE TAB [Suspect]
     Indication: INFLAMMATION
     Dosage: 40MG TAPERING DOWN TO 5MG OVER ONE WEEK
     Dates: start: 20080326, end: 20080401

REACTIONS (2)
  - DUODENAL ULCER PERFORATION [None]
  - SEPSIS [None]
